FAERS Safety Report 7222027-7 (Version None)
Quarter: 2011Q1

REPORT INFORMATION
  Report Type: 
  Country: None (occurrence: None)
  Receive Date: 20110103
  Receipt Date: 20101216
  Transmission Date: 20110831
  Serious: Yes (Life-Threatening, Hospitalization)
  Sender: FDA-Public Use
  Company Number: IPC201012-000326

PATIENT
  Sex: Male

DRUGS (1)
  1. HYDROXYCHLOROQUINE SULFATE [Suspect]
     Indication: SYSTEMIC LUPUS ERYTHEMATOSUS
     Dosage: ORAL 200 MG TABLETS
     Route: 048

REACTIONS (4)
  - HEART VALVE INCOMPETENCE [None]
  - PERICARDIAL EFFUSION [None]
  - APHASIA [None]
  - CARDIAC DISORDER [None]
